FAERS Safety Report 24941096 (Version 1)
Quarter: 2025Q1

REPORT INFORMATION
  Report Type: Report from Study
  Country: CA (occurrence: CA)
  Receive Date: 20250207
  Receipt Date: 20250207
  Transmission Date: 20250409
  Serious: Yes (Other)
  Sender: ABBVIE
  Company Number: CA-ABBVIE-6118480

PATIENT
  Age: 27 Year
  Sex: Female

DRUGS (1)
  1. SKYRIZI [Suspect]
     Active Substance: RISANKIZUMAB-RZAA
     Indication: Crohn^s disease
     Route: 042
     Dates: start: 20240106

REACTIONS (3)
  - Ileocolectomy [Recovering/Resolving]
  - Gastrointestinal inflammation [Not Recovered/Not Resolved]
  - Extra dose administered [Recovering/Resolving]

NARRATIVE: CASE EVENT DATE: 20240524
